FAERS Safety Report 4798965-1 (Version None)
Quarter: 2005Q4

REPORT INFORMATION
  Report Type: 
  Country: None (occurrence: None)
  Receive Date: 20051011
  Receipt Date: 20050929
  Transmission Date: 20060501
  Serious: Yes (Hospitalization)
  Sender: FDA-Public Use
  Company Number: 218162

PATIENT
  Age: 48 Year
  Sex: Female

DRUGS (1)
  1. RITUXAN [Suspect]
     Indication: GLOMERULONEPHRITIS CHRONIC
     Dosage: 150 MG/M2, INTRAVENOUS
     Route: 042
     Dates: start: 20040911, end: 20040914

REACTIONS (6)
  - DIARRHOEA [None]
  - GRANULOCYTES MATURATION ARREST [None]
  - HYPOGAMMAGLOBULINAEMIA [None]
  - NEUTROPHIL COUNT DECREASED [None]
  - PYREXIA [None]
  - WHITE BLOOD CELL COUNT INCREASED [None]
